FAERS Safety Report 8298826-X (Version None)
Quarter: 2012Q2

REPORT INFORMATION
  Report Type: 
  Country: None (occurrence: None)
  Receive Date: 20120419
  Receipt Date: 20120411
  Transmission Date: 20120825
  Serious: Yes (Hospitalization)
  Sender: FDA-Public Use
  Company Number: US-US-EMD SERONO, INC.-7125762

PATIENT
  Sex: Male
  Weight: 115 kg

DRUGS (2)
  1. REBIF [Suspect]
     Route: 058
     Dates: start: 20120201, end: 20120406
  2. REBIF [Suspect]
     Indication: MULTIPLE SCLEROSIS
     Route: 058
     Dates: start: 20060724, end: 20120201

REACTIONS (4)
  - ANAEMIA [None]
  - CARDIAC FAILURE CONGESTIVE [None]
  - INAPPROPRIATE SCHEDULE OF DRUG ADMINISTRATION [None]
  - MUSCLE SPASMS [None]
